FAERS Safety Report 17483948 (Version 9)
Quarter: 2020Q3

REPORT INFORMATION
  Report Type: Report from Study
  Country: IN (occurrence: IN)
  Receive Date: 20200302
  Receipt Date: 20200707
  Transmission Date: 20201102
  Serious: Yes (Death, Hospitalization, Disabling, Other)
  Sender: FDA-Public Use
  Company Number: IN-BAXTER-2020BAX004312

PATIENT
  Age: 68 Year
  Sex: Male

DRUGS (2)
  1. PERITONEAL DIALYSIS SOLUTION WITH 2.5% DEXTROSE [Suspect]
     Active Substance: CALCIUM CHLORIDE\DEXTROSE\MAGNESIUM CHLORIDE\SODIUM CHLORIDE\SODIUM LACTATE
     Indication: RENAL FAILURE
     Dosage: 3 BAGS
     Route: 033
  2. EXTRANEAL [Suspect]
     Active Substance: CALCIUM CHLORIDE\ICODEXTRIN\MAGNESIUM CHLORIDE\SODIUM CHLORIDE\SODIUM LACTATE
     Indication: RENAL FAILURE
     Dosage: 1 BAG
     Route: 033

REACTIONS (7)
  - Hypotension [Fatal]
  - Decreased appetite [Recovered/Resolved]
  - Asthenia [Not Recovered/Not Resolved]
  - Peritonitis [Recovered/Resolved]
  - Mobility decreased [Not Recovered/Not Resolved]
  - Gait inability [Not Recovered/Not Resolved]
  - Cerebral haemorrhage [Fatal]

NARRATIVE: CASE EVENT DATE: 2019
